FAERS Safety Report 25324862 (Version 2)
Quarter: 2025Q2

REPORT INFORMATION
  Report Type: Report from Study
  Country: US (occurrence: US)
  Receive Date: 20250516
  Receipt Date: 20250520
  Transmission Date: 20250716
  Serious: Yes (Other)
  Sender: PFIZER
  Company Number: US-PFIZER INC-PV202500058408

PATIENT
  Age: 42 Year
  Sex: Male
  Weight: 88.798 kg

DRUGS (20)
  1. TESTOSTERONE CYPIONATE [Suspect]
     Active Substance: TESTOSTERONE CYPIONATE
     Indication: Hormone replacement therapy
  2. LUMRYZ [Suspect]
     Active Substance: SODIUM OXYBATE
     Indication: Narcolepsy
     Dosage: 9 G, ONCE NIGHTLY (EXTENDED-RELEASE)
     Route: 048
  3. NALTREXONE HYDROCHLORIDE [Concomitant]
     Active Substance: NALTREXONE HYDROCHLORIDE
  4. PROPRANOLOL HYDROCHLORIDE [Concomitant]
     Active Substance: PROPRANOLOL HYDROCHLORIDE
  5. POTASSIUM CHLORIDE [Concomitant]
     Active Substance: POTASSIUM CHLORIDE
  6. CLOMID [Concomitant]
     Active Substance: CLOMIPHENE CITRATE
  7. RESTASIS [Concomitant]
     Active Substance: CYCLOSPORINE
  8. SUCCIMER [Concomitant]
     Active Substance: SUCCIMER
  9. ALPHA LIPOIC ACID [Concomitant]
     Active Substance: .ALPHA.-LIPOIC ACID
  10. BENFOTIAMINE [Concomitant]
     Active Substance: BENFOTIAMINE
  11. VITAMIN D2 [Concomitant]
     Active Substance: ERGOCALCIFEROL
  12. MENAQUINONE 7 [Concomitant]
     Active Substance: MENAQUINONE 7
  13. VITAMIN E-100 [Concomitant]
  14. MAGNESIUM GLYCINATE [Concomitant]
     Active Substance: MAGNESIUM GLYCINATE
  15. IODINE [Concomitant]
     Active Substance: IODINE
  16. XYREM [Concomitant]
     Active Substance: SODIUM OXYBATE
  17. MELATONIN [Concomitant]
     Active Substance: MELATONIN
  18. TRAZODONE HCL [Concomitant]
     Active Substance: TRAZODONE HYDROCHLORIDE
  19. ACETYLCARNITINE [Concomitant]
     Active Substance: ACETYLCARNITINE
  20. OXITRIPTAN [Concomitant]
     Active Substance: OXITRIPTAN

REACTIONS (2)
  - Deafness [Unknown]
  - Blood oestrogen increased [Unknown]

NARRATIVE: CASE EVENT DATE: 20250418
